FAERS Safety Report 7958723-3 (Version None)
Quarter: 2011Q4

REPORT INFORMATION
  Report Type: 
  Country: None (occurrence: None)
  Receive Date: 20111206
  Receipt Date: 20110606
  Transmission Date: 20120403
  Serious: No
  Sender: FDA-Public Use
  Company Number: US-BAYER-2011-048811

PATIENT
  Sex: Female
  Weight: 80.726 kg

DRUGS (3)
  1. MIRENA [Suspect]
     Indication: CONTRACEPTION
     Dosage: 20 MCG/24HR, UNK
     Route: 015
     Dates: start: 20100622, end: 20110501
  2. AUGMENTIN [Concomitant]
     Dosage: UNK UNK, QD
     Route: 048
     Dates: start: 20100622
  3. MOTILIUM [Concomitant]
     Dosage: 10 MG, UNK

REACTIONS (2)
  - WEIGHT INCREASED [None]
  - AMENORRHOEA [None]
